FAERS Safety Report 21629740 (Version 2)
Quarter: 2023Q1

REPORT INFORMATION
  Report Type: Report from Study
  Country: US (occurrence: US)
  Receive Date: 20221122
  Receipt Date: 20230228
  Transmission Date: 20230417
  Serious: No
  Sender: FDA-Public Use
  Company Number: US-ABBVIE-22K-163-4420313-00

PATIENT
  Age: 28 Year
  Sex: Female

DRUGS (7)
  1. HUMIRA [Suspect]
     Active Substance: ADALIMUMAB
     Indication: Psoriasis
     Dosage: CITRATE FREE
     Route: 058
     Dates: start: 20200810
  2. HUMIRA [Suspect]
     Active Substance: ADALIMUMAB
     Indication: Psoriasis
     Dosage: CITRATE FREE
     Route: 058
     Dates: start: 20200810
  3. HUMIRA [Suspect]
     Active Substance: ADALIMUMAB
     Indication: Psoriasis
     Dosage: CITRATE FREE, DAY 8
     Route: 058
  4. HUMIRA [Suspect]
     Active Substance: ADALIMUMAB
     Dosage: CITRATE FREE
     Route: 058
  5. HUMIRA [Suspect]
     Active Substance: ADALIMUMAB
     Dosage: CITRATE FREE
     Route: 058
  6. AMOXICILLIN [Suspect]
     Active Substance: AMOXICILLIN
     Indication: Acne
     Route: 065
  7. TYLENOL [Suspect]
     Active Substance: ACETAMINOPHEN
     Indication: Product used for unknown indication
     Route: 065

REACTIONS (14)
  - Illness [Recovered/Resolved]
  - Acne [Recovering/Resolving]
  - Nasopharyngitis [Unknown]
  - Ingrown hair [Unknown]
  - Psoriasis [Unknown]
  - Psoriasis [Not Recovered/Not Resolved]
  - Gastroenteritis viral [Recovered/Resolved]
  - COVID-19 [Recovered/Resolved]
  - Urinary tract infection [Unknown]
  - Dehydration [Unknown]
  - Psoriasis [Recovering/Resolving]
  - Illness [Unknown]
  - Migraine [Unknown]
  - Weight decreased [Unknown]

NARRATIVE: CASE EVENT DATE: 20201219
